FAERS Safety Report 5579751-1 (Version None)
Quarter: 2008Q1

REPORT INFORMATION
  Report Type: 
  Country: None (occurrence: None)
  Receive Date: 20080102
  Receipt Date: 20071217
  Transmission Date: 20080703
  Serious: Yes (Other)
  Sender: FDA-Public Use
  Company Number: FR-GILEAD-2007-0014677

PATIENT
  Sex: Female
  Weight: 72 kg

DRUGS (4)
  1. TRUVADA [Suspect]
     Indication: HIV INFECTION
     Route: 048
     Dates: start: 20051012
  2. NORVIR 100 [Concomitant]
     Indication: HIV INFECTION
     Route: 048
     Dates: start: 20051012
  3. TMC 114 [Concomitant]
     Indication: HIV INFECTION
     Route: 048
     Dates: start: 20051012
  4. ZELITREX [Concomitant]
     Indication: HERPES VIRUS INFECTION
     Route: 048
     Dates: start: 20030101

REACTIONS (2)
  - ABORTION SPONTANEOUS [None]
  - PREGNANCY [None]
